FAERS Safety Report 16553830 (Version 2)
Quarter: 2019Q3

REPORT INFORMATION
  Report Type: Spontaneous
  Country: DE (occurrence: DE)
  Receive Date: 20190710
  Receipt Date: 20190812
  Transmission Date: 20191004
  Serious: Yes (Death, Other)
  Sender: FDA-Public Use
  Company Number: DE-TAKEDA-2019TUS042172

PATIENT
  Sex: Female

DRUGS (6)
  1. ICLUSIG [Suspect]
     Active Substance: PONATINIB
     Indication: ACUTE LYMPHOCYTIC LEUKAEMIA
     Dosage: UNK
     Route: 048
  2. MINI HYPER CVAD [CYCLOPHOSPHAMIDE] [Suspect]
     Active Substance: CYCLOPHOSPHAMIDE
     Indication: ACUTE LYMPHOCYTIC LEUKAEMIA RECURRENT
     Dosage: UNK
     Route: 065
  3. MINI HYPER CVAD [DEXAMETHASONE] [Suspect]
     Active Substance: DEXAMETHASONE
  4. MINI HYPER CVAD [METHOTREXATE] [Suspect]
     Active Substance: METHOTREXATE
  5. MINI HYPER CVAD [CYTARABINE] [Suspect]
     Active Substance: CYTARABINE
  6. BESPONSA [Suspect]
     Active Substance: INOTUZUMAB OZOGAMICIN
     Indication: ACUTE LYMPHOCYTIC LEUKAEMIA RECURRENT
     Dosage: UNK
     Route: 065

REACTIONS (2)
  - Central nervous system leukaemia [Fatal]
  - Acute lymphocytic leukaemia recurrent [Fatal]
